FAERS Safety Report 5609214-6 (Version None)
Quarter: 2008Q1

REPORT INFORMATION
  Report Type: 
  Country: None (occurrence: None)
  Receive Date: 20080129
  Receipt Date: 20080129
  Transmission Date: 20080703
  Serious: Yes (Other)
  Sender: FDA-Public Use
  Company Number: None

PATIENT
  Sex: Female
  Weight: 107.0489 kg

DRUGS (9)
  1. CHANTIX [Suspect]
     Indication: TOBACCO USER
     Dosage: 1 MG TWO TIMES PER OTHER
     Route: 050
     Dates: start: 20071018, end: 20080110
  2. OMEPRAZOLE [Concomitant]
  3. GLIPIZIDE [Concomitant]
  4. ACTOPLUS MET [Concomitant]
  5. LISINOPRIL [Concomitant]
  6. HYDROCHLOROTHIAZIDE [Concomitant]
  7. LOVESTATIN [Concomitant]
  8. ASPIRIN [Concomitant]
  9. ALLOPURINOL [Concomitant]

REACTIONS (3)
  - DEPRESSION [None]
  - IRRITABILITY [None]
  - TEARFULNESS [None]
